FAERS Safety Report 11513779 (Version 11)
Quarter: 2018Q1

REPORT INFORMATION
  Report Type: Spontaneous
  Country: US (occurrence: US)
  Receive Date: 20150916
  Receipt Date: 20180320
  Transmission Date: 20180508
  Serious: Yes (Hospitalization, Other)
  Sender: FDA-Public Use
  Company Number: US-PFIZER INC-2015295328

PATIENT
  Age: 67 Year
  Sex: Female
  Weight: 74.84 kg

DRUGS (6)
  1. IBRANCE [Suspect]
     Active Substance: PALBOCICLIB
     Indication: BREAST CANCER METASTATIC
     Dosage: 100 MG, CYCLIC (DAY 1-21 EVERY 28 DAYS)
     Route: 048
     Dates: start: 20150812, end: 201803
  2. IBRANCE [Suspect]
     Active Substance: PALBOCICLIB
     Dosage: 100 MG, CYCLIC (DAY 1-21 EVERY 28 DAYS)
     Route: 048
  3. IBRANCE [Suspect]
     Active Substance: PALBOCICLIB
     Dosage: 100 MG, CYCLIC (DAY 1-21 EVERY 28 DAYS)
     Route: 048
  4. IBRANCE [Suspect]
     Active Substance: PALBOCICLIB
     Dosage: 100 MG, CYCLIC (DAY 1-21 EVERY 28 DAYS)
     Route: 048
  5. IBRANCE [Suspect]
     Active Substance: PALBOCICLIB
     Dosage: 100 MG, CYCLIC (DAY 1-21 EVERY 28 DAYS)
     Route: 048
  6. IBRANCE [Suspect]
     Active Substance: PALBOCICLIB
     Dosage: 100 MG, CYCLIC (DAY 1-21 EVERY 28 DAYS)
     Route: 048

REACTIONS (23)
  - Rib fracture [Unknown]
  - Haemorrhage [Unknown]
  - Syncope [Unknown]
  - Head injury [Unknown]
  - White blood cell count decreased [Unknown]
  - Hot flush [Unknown]
  - Allergic sinusitis [Unknown]
  - Sneezing [Unknown]
  - Thrombocytopenia [Recovered/Resolved]
  - Wheezing [Unknown]
  - Dizziness [Unknown]
  - Haemoglobin decreased [Recovered/Resolved]
  - Cough [Unknown]
  - Full blood count decreased [Unknown]
  - Upper-airway cough syndrome [Unknown]
  - Cerebral haemorrhage [Unknown]
  - Weight decreased [Unknown]
  - Neoplasm progression [Unknown]
  - Accident [Unknown]
  - Onychoclasis [Unknown]
  - Limb discomfort [Unknown]
  - Confusional state [Unknown]
  - Hypotension [Unknown]

NARRATIVE: CASE EVENT DATE: 2015
